FAERS Safety Report 8212252-0 (Version None)
Quarter: 2012Q1

REPORT INFORMATION
  Report Type: 
  Country: None (occurrence: None)
  Receive Date: 20120315
  Receipt Date: 20120306
  Transmission Date: 20120608
  Serious: Yes (Hospitalization)
  Sender: FDA-Public Use
  Company Number: US-JNJFOC-20120303365

PATIENT
  Age: 7 Year
  Sex: Female

DRUGS (1)
  1. INVEGA [Suspect]
     Indication: HALLUCINATION
     Route: 048
     Dates: start: 20120217

REACTIONS (5)
  - HYPERSOMNIA [None]
  - CATATONIA [None]
  - STARING [None]
  - CONVULSION [None]
  - EXTRAPYRAMIDAL DISORDER [None]
